FAERS Safety Report 9715639 (Version 4)
Quarter: 2014Q1

REPORT INFORMATION
  Report Type: Report from Study
  Country: JP (occurrence: JP)
  Receive Date: 20131127
  Receipt Date: 20140303
  Transmission Date: 20141002
  Serious: Yes (Hospitalization)
  Sender: FDA-Public Use
  Company Number: JP-JNJFOC-20131114195

PATIENT
  Age: 74 Year
  Sex: Female
  Weight: 53 kg

DRUGS (9)
  1. SIMPONI [Suspect]
     Indication: RHEUMATOID ARTHRITIS
     Route: 058
     Dates: start: 20120815, end: 20120910
  2. SIMPONI [Suspect]
     Indication: RHEUMATOID ARTHRITIS
     Route: 058
     Dates: start: 20121003, end: 20121003
  3. SIMPONI [Suspect]
     Indication: RHEUMATOID ARTHRITIS
     Route: 058
     Dates: start: 20121031, end: 20121031
  4. SIMPONI [Suspect]
     Indication: RHEUMATOID ARTHRITIS
     Route: 058
     Dates: start: 20121129, end: 20121129
  5. PREDNISOLONE [Concomitant]
     Indication: RHEUMATOID ARTHRITIS
     Route: 048
     Dates: end: 20121129
  6. CELECOX [Concomitant]
     Indication: RHEUMATOID ARTHRITIS
     Route: 048
     Dates: end: 20121120
  7. TAKEPRON [Concomitant]
     Route: 065
  8. BONALON [Concomitant]
     Route: 065
  9. LOXONIN [Concomitant]
     Route: 065
     Dates: start: 20111121, end: 20121220

REACTIONS (2)
  - Sinusitis [Unknown]
  - Upper respiratory tract infection [Recovering/Resolving]
